FAERS Safety Report 5331667-1 (Version None)
Quarter: 2007Q2

REPORT INFORMATION
  Report Type: 
  Country: None (occurrence: None)
  Receive Date: 20070522
  Receipt Date: 20070514
  Transmission Date: 20071010
  Serious: Yes (Hospitalization)
  Sender: FDA-Public Use
  Company Number: US-GENENTECH-240874

PATIENT
  Sex: Male

DRUGS (4)
  1. AVASTIN [Suspect]
     Indication: COLORECTAL CANCER METASTATIC
     Dosage: 5 MG/KG, Q2W
     Route: 042
  2. FOLINIC ACID [Concomitant]
     Indication: COLORECTAL CANCER METASTATIC
  3. FLUOROURACIL [Concomitant]
     Indication: COLORECTAL CANCER METASTATIC
  4. OXALIPLATIN [Concomitant]
     Indication: COLORECTAL CANCER METASTATIC

REACTIONS (1)
  - COLONIC STENOSIS [None]
